FAERS Safety Report 22318968 (Version 1)
Quarter: 2023Q2

REPORT INFORMATION
  Report Type: Spontaneous
  Country: US (occurrence: None)
  Receive Date: 20230511
  Receipt Date: 20230511
  Transmission Date: 20230722
  Serious: Yes (Other)
  Sender: FDA-Public Use
  Company Number: None

PATIENT
  Age: 78 Year
  Sex: Male

DRUGS (2)
  1. AMBRISENTAN [Suspect]
     Active Substance: AMBRISENTAN
     Dosage: 10 MG  DAILY ORAL?
     Route: 048
     Dates: start: 20230424
  2. AMBRISENTAN [Concomitant]
     Active Substance: AMBRISENTAN
     Dates: end: 20230424

REACTIONS (4)
  - Product substitution issue [None]
  - Insurance issue [None]
  - Swollen tongue [None]
  - Dysarthria [None]

NARRATIVE: CASE EVENT DATE: 20230510
